FAERS Safety Report 18056125 (Version 4)
Quarter: 2021Q1

REPORT INFORMATION
  Report Type: Report from Study
  Country: CA (occurrence: CA)
  Receive Date: 20200722
  Receipt Date: 20210105
  Transmission Date: 20210419
  Serious: Yes (Other)
  Sender: FDA-Public Use
  Company Number: CA-JNJFOC-20200716419

PATIENT
  Age: 41 Year
  Sex: Female
  Weight: 94.43 kg

DRUGS (1)
  1. REMICADE [Suspect]
     Active Substance: INFLIXIMAB
     Indication: CROHN^S DISEASE
     Route: 042

REACTIONS (6)
  - Impaired healing [Unknown]
  - Postoperative wound infection [Recovered/Resolved]
  - Incision site complication [Not Recovered/Not Resolved]
  - Uterine leiomyoma [Unknown]
  - Procedural pain [Not Recovered/Not Resolved]
  - Cyst [Unknown]

NARRATIVE: CASE EVENT DATE: 2020
